FAERS Safety Report 6842345-1 (Version None)
Quarter: 2010Q3

REPORT INFORMATION
  Report Type: 
  Country: None (occurrence: None)
  Receive Date: 20100709
  Receipt Date: 20100628
  Transmission Date: 20110219
  Serious: Yes (Hospitalization)
  Sender: FDA-Public Use
  Company Number: 013258

PATIENT
  Sex: Female

DRUGS (15)
  1. CERTOLIZUMAB PEGOL (CERTOLIZUMAB PEGOL) [Suspect]
     Indication: RHEUMATOID ARTHRITIS
     Dosage: 200 MG 1X/2 WEEKS SUBCUTANEOUS
     Route: 058
     Dates: start: 20091210
  2. PREDNISOLONE [Concomitant]
  3. KETOPROFEN [Concomitant]
  4. ZALTOPROFEN [Concomitant]
  5. VOLTAREN [Concomitant]
  6. FAMOGAST [Concomitant]
  7. PLAVIX [Concomitant]
  8. ASPARTATE CALCIUM [Concomitant]
  9. CALFINA [Concomitant]
  10. BENET [Concomitant]
  11. RIBOFLAVIN TETRABUTYRATE [Concomitant]
  12. MAIBASTAN [Concomitant]
  13. ALUMINIUM HYDROXIDE W/MAGNESIUM HYDROXIDE [Concomitant]
  14. ISCOTIN [Concomitant]
  15. EBASTINE [Concomitant]

REACTIONS (3)
  - HERPES ZOSTER OTICUS [None]
  - HYPERSENSITIVITY [None]
  - LACUNAR INFARCTION [None]
